FAERS Safety Report 8919334 (Version 5)
Quarter: 2013Q1

REPORT INFORMATION
  Report Type: Spontaneous
  Country: GB (occurrence: GB)
  Receive Date: 20121121
  Receipt Date: 20130207
  Transmission Date: 20140127
  Serious: Yes (Hospitalization, Other)
  Sender: FDA-Public Use
  Company Number: GB-VERTEX PHARMACEUTICAL INC.-2012-024594

PATIENT
  Age: 29 Year
  Sex: Female
  Weight: 43 kg

DRUGS (6)
  1. KALYDECO [Suspect]
     Indication: CYSTIC FIBROSIS
     Dosage: UNK
     Route: 048
     Dates: start: 20121108, end: 20121111
  2. KALYDECO [Suspect]
     Dosage: UNK
     Route: 048
     Dates: start: 20121114, end: 20121116
  3. TOBRAMYCIN [Concomitant]
     Dosage: UNK
     Dates: start: 201210, end: 20121113
  4. FOSFOMYCIN [Concomitant]
     Dosage: UNK
     Dates: start: 201210, end: 20121113
  5. TAZOCIN [Concomitant]
     Dosage: UNK
     Route: 042
     Dates: start: 201210, end: 201211
  6. TAMIFLU [Concomitant]
     Dosage: UNK
     Dates: start: 201211, end: 201211

REACTIONS (2)
  - Septic shock [Unknown]
  - Type IV hypersensitivity reaction [Unknown]
